FAERS Safety Report 5052794-2 (Version None)
Quarter: 2006Q3

REPORT INFORMATION
  Report Type: 
  Country: None (occurrence: None)
  Receive Date: 20060717
  Receipt Date: 20060630
  Transmission Date: 20061208
  Serious: Yes (Hospitalization)
  Sender: FDA-Public Use
  Company Number: PHBS2006DK09998

PATIENT
  Age: 72 Year
  Sex: Female

DRUGS (2)
  1. GLEEVEC [Suspect]
     Indication: CHRONIC MYELOID LEUKAEMIA
     Dosage: 200 MG/D
     Route: 048
     Dates: start: 20060522
  2. SIMVASTATIN [Suspect]
     Dates: end: 20060628

REACTIONS (6)
  - DRUG INTERACTION [None]
  - GAIT DISTURBANCE [None]
  - MUSCLE ENZYME INCREASED [None]
  - MUSCULAR WEAKNESS [None]
  - MYOSITIS [None]
  - RHABDOMYOLYSIS [None]
